FAERS Safety Report 19268690 (Version 1)
Quarter: 2021Q2

REPORT INFORMATION
  Report Type: Spontaneous
  Country: CN (occurrence: CN)
  Receive Date: 20210518
  Receipt Date: 20210518
  Transmission Date: 20210717
  Serious: Yes (Other)
  Sender: FDA-Public Use
  Company Number: CN-ROCHE-2831759

PATIENT
  Age: 69 Year
  Sex: Male

DRUGS (41)
  1. MABTHERA [Suspect]
     Active Substance: RITUXIMAB
     Dosage: DAY1,Q 14X2
     Route: 065
     Dates: start: 2021
  2. CYCLOPHOSPHAMIDE. [Concomitant]
     Active Substance: CYCLOPHOSPHAMIDE
     Dosage: CHOP
     Dates: start: 20200526
  3. CYCLOPHOSPHAMIDE. [Concomitant]
     Active Substance: CYCLOPHOSPHAMIDE
     Dosage: R?CHOP
     Dates: start: 20200717
  4. PREDNISONE. [Concomitant]
     Active Substance: PREDNISONE
     Dosage: R?CHOP
     Dates: start: 20200717
  5. CISPLATIN. [Concomitant]
     Active Substance: CISPLATIN
     Indication: NON-HODGKIN^S LYMPHOMA
     Dosage: DAY1 TO DAY4,R?ESHAP
     Dates: start: 20210115
  6. OXALIPLATIN. [Concomitant]
     Active Substance: OXALIPLATIN
     Indication: NON-HODGKIN^S LYMPHOMA
     Dosage: DAY2,Q 14X2
     Dates: start: 2021
  7. MABTHERA [Suspect]
     Active Substance: RITUXIMAB
     Indication: DIFFUSE LARGE B-CELL LYMPHOMA
     Dosage: DAY0,R?ESHAP
     Route: 065
     Dates: start: 20210218
  8. DOXORUBICIN [Concomitant]
     Active Substance: DOXORUBICIN
     Dosage: R?CHOP
     Dates: start: 20200620
  9. DOXORUBICIN [Concomitant]
     Active Substance: DOXORUBICIN
     Dosage: R?CHOP
     Dates: start: 20200717
  10. VINCRISTINE [Concomitant]
     Active Substance: VINCRISTINE
     Indication: DIFFUSE LARGE B-CELL LYMPHOMA
     Dosage: CHOP FOR 2 CYCLES
     Dates: start: 20200303
  11. VINCRISTINE [Concomitant]
     Active Substance: VINCRISTINE
     Dosage: CHOP
     Dates: start: 20200430
  12. PREDNISONE. [Concomitant]
     Active Substance: PREDNISONE
     Dosage: R?CHOP
     Dates: start: 20200620
  13. CYTARABINE. [Concomitant]
     Active Substance: CYTARABINE
     Indication: NON-HODGKIN^S LYMPHOMA
     Dosage: DAY5,R?ESHAP
     Dates: start: 20210115
  14. MABTHERA [Suspect]
     Active Substance: RITUXIMAB
     Dosage: R?CHOP
     Route: 065
     Dates: start: 20200620
  15. VINCRISTINE [Concomitant]
     Active Substance: VINCRISTINE
     Dosage: CHOP
     Dates: start: 20200526
  16. GEMCITABINE. [Concomitant]
     Active Substance: GEMCITABINE
     Indication: DIFFUSE LARGE B-CELL LYMPHOMA
  17. CYCLOPHOSPHAMIDE. [Concomitant]
     Active Substance: CYCLOPHOSPHAMIDE
     Dosage: R?CHOP
     Dates: start: 20200620
  18. PREDNISONE. [Concomitant]
     Active Substance: PREDNISONE
     Indication: NON-HODGKIN^S LYMPHOMA
     Dosage: CHOP FOR 2 CYCLES
     Dates: start: 20200210
  19. PREDNISONE. [Concomitant]
     Active Substance: PREDNISONE
     Dosage: CHOP
     Dates: start: 20200430
  20. METHYLPREDNISOLONE. [Concomitant]
     Active Substance: METHYLPREDNISOLONE
     Indication: NON-HODGKIN^S LYMPHOMA
     Dosage: DAY1 TO DAY4,R?ESHAP
     Dates: start: 20210115
  21. METHYLPREDNISOLONE. [Concomitant]
     Active Substance: METHYLPREDNISOLONE
     Indication: DIFFUSE LARGE B-CELL LYMPHOMA
     Dosage: DAY1 TO DAY4,R?ESHAP
     Dates: start: 20210218
  22. MABTHERA [Suspect]
     Active Substance: RITUXIMAB
     Indication: NON-HODGKIN^S LYMPHOMA
     Dosage: DAY0,R?ESHAP
     Route: 065
     Dates: start: 20210115
  23. MABTHERA [Suspect]
     Active Substance: RITUXIMAB
     Dosage: R?CHOP
     Route: 065
     Dates: start: 20200717
  24. CYCLOPHOSPHAMIDE. [Concomitant]
     Active Substance: CYCLOPHOSPHAMIDE
     Dosage: CHOP
     Dates: start: 20200430
  25. DOXORUBICIN [Concomitant]
     Active Substance: DOXORUBICIN
     Dosage: CHOP
     Dates: start: 20200430
  26. VINCRISTINE [Concomitant]
     Active Substance: VINCRISTINE
     Indication: NON-HODGKIN^S LYMPHOMA
     Dosage: CHOP FOR 2 CYCLES
     Dates: start: 20200210
  27. PREDNISONE. [Concomitant]
     Active Substance: PREDNISONE
     Indication: DIFFUSE LARGE B-CELL LYMPHOMA
     Dosage: CHOP FOR 2 CYCLES
     Dates: start: 20200303
  28. PREDNISONE. [Concomitant]
     Active Substance: PREDNISONE
     Dosage: CHOP
     Dates: start: 20200526
  29. ETOPOSIDE. [Concomitant]
     Active Substance: ETOPOSIDE
     Indication: NON-HODGKIN^S LYMPHOMA
     Dosage: DAY1 TO DAY4,R?ESHAP
     Dates: start: 20210115
  30. CYTARABINE. [Concomitant]
     Active Substance: CYTARABINE
     Indication: DIFFUSE LARGE B-CELL LYMPHOMA
     Dosage: DAY5,R?ESHAP
     Dates: start: 20210218
  31. CYCLOPHOSPHAMIDE. [Concomitant]
     Active Substance: CYCLOPHOSPHAMIDE
     Indication: NON-HODGKIN^S LYMPHOMA
     Dosage: CHOP FOR 2 CYCLES
     Dates: start: 20200210
  32. DOXORUBICIN [Concomitant]
     Active Substance: DOXORUBICIN
     Indication: DIFFUSE LARGE B-CELL LYMPHOMA
     Dosage: CHOP FOR 2 CYCLES
     Dates: start: 20200303
  33. VINCRISTINE [Concomitant]
     Active Substance: VINCRISTINE
     Dosage: R?CHOP
     Dates: start: 20200620
  34. ETOPOSIDE. [Concomitant]
     Active Substance: ETOPOSIDE
     Indication: DIFFUSE LARGE B-CELL LYMPHOMA
     Dosage: DAY1 TO DAY4,R?ESHAP
     Dates: start: 20210218
  35. GEMCITABINE. [Concomitant]
     Active Substance: GEMCITABINE
     Indication: NON-HODGKIN^S LYMPHOMA
     Dosage: DAY2,Q 14X2
     Dates: start: 2021
  36. OXALIPLATIN. [Concomitant]
     Active Substance: OXALIPLATIN
     Indication: DIFFUSE LARGE B-CELL LYMPHOMA
  37. CYCLOPHOSPHAMIDE. [Concomitant]
     Active Substance: CYCLOPHOSPHAMIDE
     Indication: DIFFUSE LARGE B-CELL LYMPHOMA
     Dosage: CHOP FOR 2 CYCLES
     Dates: start: 20200303
  38. DOXORUBICIN [Concomitant]
     Active Substance: DOXORUBICIN
     Indication: NON-HODGKIN^S LYMPHOMA
     Dosage: CHOP FOR 2 CYCLES
     Dates: start: 20200210
  39. DOXORUBICIN [Concomitant]
     Active Substance: DOXORUBICIN
     Dosage: CHOP
     Dates: start: 20200526
  40. VINCRISTINE [Concomitant]
     Active Substance: VINCRISTINE
     Dosage: R?CHOP
     Dates: start: 20200717
  41. CISPLATIN. [Concomitant]
     Active Substance: CISPLATIN
     Indication: DIFFUSE LARGE B-CELL LYMPHOMA
     Dosage: DAY1 TO DAY4,R?ESHAP
     Dates: start: 20210218

REACTIONS (1)
  - Myelosuppression [Unknown]
